FAERS Safety Report 9534929 (Version 2)
Quarter: 2013Q3

REPORT INFORMATION
  Report Type: Spontaneous
  Country: US (occurrence: US)
  Receive Date: 20130918
  Receipt Date: 20130918
  Transmission Date: 20140515
  Serious: No
  Sender: FDA-Public Use
  Company Number: US-PURDUE-USA-2011-0079429

PATIENT
  Sex: Female

DRUGS (6)
  1. BUTRANS [Suspect]
     Indication: PAIN
     Dosage: 10 MCG, Q1H
     Route: 062
     Dates: start: 20111205
  2. BUTRANS [Suspect]
     Dosage: 20 MCG, Q1H
     Route: 062
     Dates: start: 20111110, end: 20111204
  3. BENADRYL                           /00000402/ [Concomitant]
     Indication: PRURITUS
     Dosage: UNK
  4. TIZANIDINE HYDROCHLORIDE [Concomitant]
     Indication: MUSCLE SPASMS
     Dosage: 4 MG, PRN
  5. PERCOCET                           /00446701/ [Concomitant]
     Indication: BREAKTHROUGH PAIN
     Dosage: 7.5 MG, PRN
  6. SOLUMEDROL [Concomitant]
     Indication: PRURITUS
     Dosage: UNK

REACTIONS (9)
  - Drug effect increased [Recovered/Resolved]
  - Application site atrophy [Unknown]
  - Inadequate analgesia [Not Recovered/Not Resolved]
  - Application site pruritus [Not Recovered/Not Resolved]
  - Application site erythema [Not Recovered/Not Resolved]
  - Lethargy [Not Recovered/Not Resolved]
  - Headache [Recovered/Resolved]
  - Pain [Not Recovered/Not Resolved]
  - Fatigue [Unknown]
